FAERS Safety Report 18425885 (Version 1)
Quarter: 2020Q4

REPORT INFORMATION
  Report Type: Spontaneous
  Country: CN (occurrence: CN)
  Receive Date: 20201026
  Receipt Date: 20201026
  Transmission Date: 20210114
  Serious: Yes (Other)
  Sender: FDA-Public Use
  Company Number: CN-PFIZER INC-2020411472

PATIENT
  Age: 83 Year
  Sex: Male

DRUGS (9)
  1. SOLU-MEDROL [Suspect]
     Active Substance: METHYLPREDNISOLONE SODIUM SUCCINATE
     Indication: EMPHYSEMA
  2. CEFOTAXIME SODIUM/SULBACTAM SODIUM [Concomitant]
     Indication: EMPHYSEMA
  3. CEFOTAXIME SODIUM/SULBACTAM SODIUM [Concomitant]
     Indication: INFECTION
  4. SOLU-MEDROL [Suspect]
     Active Substance: METHYLPREDNISOLONE SODIUM SUCCINATE
     Indication: INFECTION
  5. SOLU-MEDROL [Suspect]
     Active Substance: METHYLPREDNISOLONE SODIUM SUCCINATE
     Indication: BRONCHITIS CHRONIC
     Dosage: 40 MG, 2X/DAY
     Route: 040
     Dates: start: 20200902, end: 20200905
  6. CEFOTAXIME SODIUM/SULBACTAM SODIUM [Concomitant]
     Indication: BRONCHITIS CHRONIC
     Dosage: 3 G, 3X/DAY
     Route: 041
     Dates: start: 20200902, end: 20200909
  7. RABEPRAZOLE SODIUM. [Concomitant]
     Active Substance: RABEPRAZOLE SODIUM
     Indication: BRONCHITIS CHRONIC
     Dosage: 20 MG, 1X/DAY
     Route: 041
     Dates: start: 20200902, end: 20201007
  8. RABEPRAZOLE SODIUM. [Concomitant]
     Active Substance: RABEPRAZOLE SODIUM
     Indication: EMPHYSEMA
  9. RABEPRAZOLE SODIUM. [Concomitant]
     Active Substance: RABEPRAZOLE SODIUM
     Indication: INFECTION

REACTIONS (1)
  - Upper gastrointestinal haemorrhage [Recovering/Resolving]

NARRATIVE: CASE EVENT DATE: 20200904
